FAERS Safety Report 5205902-4 (Version None)
Quarter: 2006Q4

REPORT INFORMATION
  Report Type: 
  Country: None (occurrence: None)
  Receive Date: 20061027
  Receipt Date: 20060927
  Transmission Date: 20070319
  Serious: No
  Sender: FDA-Public Use
  Company Number: 012571

PATIENT
  Age: 65 Year
  Sex: Female

DRUGS (2)
  1. PRIALT [Suspect]
     Indication: PAIN
     Dosage: ONCE/HOUR, INTRATHECAL
     Route: 037
     Dates: start: 20060806, end: 20060915
  2. KADIAN [Concomitant]

REACTIONS (4)
  - ABASIA [None]
  - MENTAL IMPAIRMENT [None]
  - MOBILITY DECREASED [None]
  - NAUSEA [None]
